APPROVED DRUG PRODUCT: ACYCLOVIR
Active Ingredient: ACYCLOVIR SODIUM
Strength: EQ 50MG BASE/ML
Dosage Form/Route: INJECTABLE;INJECTION
Application: A075114 | Product #001
Applicant: ABBVIE INC
Approved: Jul 26, 1999 | RLD: No | RS: No | Type: DISCN